FAERS Safety Report 4722826-7 (Version None)
Quarter: 2005Q3

REPORT INFORMATION
  Report Type: 
  Country: None (occurrence: None)
  Receive Date: 20050722
  Receipt Date: 20050628
  Transmission Date: 20060218
  Serious: Yes (Other)
  Sender: FDA-Public Use
  Company Number: US-GLAXOSMITHKLINE-A0564617A

PATIENT
  Age: 63 Year
  Sex: Male
  Weight: 78.2 kg

DRUGS (3)
  1. REQUIP [Suspect]
     Indication: PARKINSON'S DISEASE
     Route: 048
     Dates: start: 20050401
  2. WARFARIN SODIUM [Concomitant]
     Route: 048
  3. ZOCOR [Concomitant]
     Dosage: 20MG PER DAY
     Route: 048

REACTIONS (7)
  - ATRIAL FIBRILLATION [None]
  - ELECTROCARDIOGRAM ST SEGMENT ABNORMAL [None]
  - ELECTROCARDIOGRAM T WAVE ABNORMAL [None]
  - MYOCARDIAL ISCHAEMIA [None]
  - PALPITATIONS [None]
  - SINUS ARREST [None]
  - VENTRICULAR EXTRASYSTOLES [None]
